FAERS Safety Report 17853263 (Version 1)
Quarter: 2020Q2

REPORT INFORMATION
  Report Type: Spontaneous
  Country: US (occurrence: US)
  Receive Date: 20200602
  Receipt Date: 20200602
  Transmission Date: 20200714
  Serious: No
  Sender: FDA-Public Use
  Company Number: US-FOUNDATIONCONSUMERHC-2020-US-000987

PATIENT
  Age: 33 Year
  Sex: Female
  Weight: 61.24 kg

DRUGS (3)
  1. TAKE ACTION [Suspect]
     Active Substance: LEVONORGESTREL
     Indication: POST COITAL CONTRACEPTION
     Dosage: 1.5MG X 2 DOSES
     Route: 048
     Dates: start: 20200114, end: 20200115
  2. MINDFUL FORCE MUSHROOM SUPPLEMENT [Concomitant]
  3. ST JOHN^S WART [Concomitant]
     Dosage: 900MG DAILY

REACTIONS (3)
  - Anxiety [Not Recovered/Not Resolved]
  - Intentional product misuse [Recovered/Resolved]
  - Incorrect dosage administered [Recovered/Resolved]

NARRATIVE: CASE EVENT DATE: 20200114
